FAERS Safety Report 15133163 (Version 1)
Quarter: 2018Q3

REPORT INFORMATION
  Report Type: Spontaneous
  Country: IT (occurrence: IT)
  Receive Date: 20180712
  Receipt Date: 20180712
  Transmission Date: 20181010
  Serious: Yes (Hospitalization)
  Sender: FDA-Public Use
  Company Number: IT-TEVA-2018-IT-923719

PATIENT
  Age: 58 Year
  Sex: Female

DRUGS (1)
  1. RIZATRIPTAN TEVA 10 MG COMPRESSE ORODISPERSIBILI [Suspect]
     Active Substance: RIZATRIPTAN
     Indication: HEADACHE
     Route: 048
     Dates: start: 20120120, end: 20120421

REACTIONS (1)
  - Cerebral haemorrhage [Recovering/Resolving]

NARRATIVE: CASE EVENT DATE: 20180421
